FAERS Safety Report 9165123 (Version 1)
Quarter: 2013Q1

REPORT INFORMATION
  Report Type: Report from Study
  Country: DK (occurrence: DK)
  Receive Date: 20130315
  Receipt Date: 20130315
  Transmission Date: 20140127
  Serious: Yes (Other)
  Sender: FDA-Public Use
  Company Number: DK-SANOFI-AVENTIS-2013SA025323

PATIENT
  Sex: 0

DRUGS (4)
  1. RIFAMPICIN [Suspect]
     Indication: TUBERCULOSIS
     Route: 065
  2. ISONIAZID [Suspect]
     Indication: TUBERCULOSIS
     Route: 065
  3. ETHAMBUTOL [Suspect]
     Indication: TUBERCULOSIS
     Route: 065
  4. PYRAZINAMIDE [Suspect]
     Indication: TUBERCULOSIS
     Route: 065

REACTIONS (1)
  - Failure to thrive [Unknown]
